FAERS Safety Report 4555419-5 (Version None)
Quarter: 2005Q1

REPORT INFORMATION
  Report Type: 
  Country: None (occurrence: None)
  Receive Date: 20050118
  Receipt Date: 20050118
  Transmission Date: 20050727
  Serious: Yes (Other)
  Sender: FDA-Public Use
  Company Number: None

PATIENT
  Age: 37 Year
  Sex: Female
  Weight: 80.2867 kg

DRUGS (1)
  1. EFFEXOR XR [Suspect]
     Indication: PREMENSTRUAL SYNDROME
     Dosage: 75MG  DAILY ORAL
     Route: 048

REACTIONS (9)
  - ABNORMAL DREAMS [None]
  - CRYING [None]
  - HEADACHE [None]
  - HYPERHIDROSIS [None]
  - HYPOAESTHESIA [None]
  - NAUSEA [None]
  - ORAL INTAKE REDUCED [None]
  - UNEVALUABLE EVENT [None]
  - WEIGHT DECREASED [None]
